FAERS Safety Report 11777665 (Version 4)
Quarter: 2015Q4

REPORT INFORMATION
  Report Type: Spontaneous
  Country: IT (occurrence: IT)
  Receive Date: 20151125
  Receipt Date: 20151217
  Transmission Date: 20160304
  Serious: Yes (Hospitalization, Other)
  Sender: FDA-Public Use
  Company Number: PHHY2015IT153892

PATIENT
  Age: 56 Year
  Sex: Female

DRUGS (2)
  1. CARVASIN [Concomitant]
     Active Substance: ISOSORBIDE DINITRATE
     Indication: PRODUCT USED FOR UNKNOWN INDICATION
     Dosage: UNK UNK, PRN
     Route: 065
  2. TASIGNA [Suspect]
     Active Substance: NILOTINIB
     Indication: CHRONIC MYELOID LEUKAEMIA
     Dosage: 800 MG, QD
     Route: 048
     Dates: start: 200907, end: 20151121

REACTIONS (2)
  - Suicide attempt [Recovered/Resolved]
  - Mood altered [Unknown]

NARRATIVE: CASE EVENT DATE: 20151121
